FAERS Safety Report 8451212-1 (Version None)
Quarter: 2012Q2

REPORT INFORMATION
  Report Type: 
  Country: None (occurrence: None)
  Receive Date: 20120620
  Receipt Date: 20120314
  Transmission Date: 20120825
  Serious: No
  Sender: FDA-Public Use
  Company Number: US-VERTEX PHARMACEUTICALS INC.-AE-2011-005347

PATIENT
  Sex: Female
  Weight: 116.22 kg

DRUGS (5)
  1. PEGASYS [Concomitant]
     Indication: HEPATITIS C
     Route: 058
     Dates: start: 20111202, end: 20111202
  2. RIBATROL [Concomitant]
  3. PEGASYS [Concomitant]
  4. RIBATROL [Concomitant]
     Indication: HEPATITIS C
     Route: 048
     Dates: start: 20111202, end: 20111202
  5. INCIVEK [Suspect]
     Indication: HEPATITIS C
     Route: 048
     Dates: start: 20111202, end: 20111202

REACTIONS (7)
  - CHEST PAIN [None]
  - NAUSEA [None]
  - CHILLS [None]
  - VISION BLURRED [None]
  - FEELING HOT [None]
  - HEADACHE [None]
  - FEELING COLD [None]
